FAERS Safety Report 14980326 (Version 25)
Quarter: 2022Q2

REPORT INFORMATION
  Report Type: Report from Study
  Country: BR (occurrence: BR)
  Receive Date: 20180606
  Receipt Date: 20220421
  Transmission Date: 20220721
  Serious: Yes (Other)
  Sender: FDA-Public Use
  Company Number: PHHY2018BR035342

PATIENT
  Age: 38 Year
  Sex: Female
  Weight: 104 kg

DRUGS (11)
  1. COSENTYX [Suspect]
     Active Substance: SECUKINUMAB
     Indication: Psoriatic arthropathy
     Dosage: 300 MG (2 PENS), QMO
     Route: 058
     Dates: start: 20170420
  2. COSENTYX [Suspect]
     Active Substance: SECUKINUMAB
     Indication: Psoriasis
     Dosage: UNK, UNKNOWN
     Route: 065
     Dates: start: 20180205
  3. COSENTYX [Suspect]
     Active Substance: SECUKINUMAB
     Indication: Erythrodermic psoriasis
     Dosage: UNK, UNKNOWN
     Route: 065
     Dates: start: 20180327
  4. COSENTYX [Suspect]
     Active Substance: SECUKINUMAB
     Dosage: UNK UNK, UNKNOWN
     Route: 058
  5. COSENTYX [Suspect]
     Active Substance: SECUKINUMAB
     Dosage: UNK UNK, UNKNOWN
     Route: 065
     Dates: start: 20181205
  6. COSENTYX [Suspect]
     Active Substance: SECUKINUMAB
     Dosage: UNK UNK, UNKNOWN
     Route: 065
     Dates: start: 20190505
  7. COSENTYX [Suspect]
     Active Substance: SECUKINUMAB
     Dosage: UNK UNK, UNKNOWN
     Route: 065
     Dates: start: 20190806
  8. COSENTYX [Suspect]
     Active Substance: SECUKINUMAB
     Dosage: 300 MG, UNKNOWN
     Route: 065
     Dates: start: 20200515
  9. COSENTYX [Suspect]
     Active Substance: SECUKINUMAB
     Dosage: 300 MG, (WEEKS 0, 1, 2, 3, 4)
     Route: 065
     Dates: start: 202007
  10. COSENTYX [Suspect]
     Active Substance: SECUKINUMAB
     Dosage: 300 MG (2 PENS OF 150 MG), QMO
     Route: 065
     Dates: start: 202104
  11. THERAPSOR [Concomitant]
     Indication: Product used for unknown indication
     Route: 065

REACTIONS (76)
  - Influenza [Recovered/Resolved]
  - Pyrexia [Recovered/Resolved]
  - Oropharyngeal pain [Recovering/Resolving]
  - Pain [Not Recovered/Not Resolved]
  - Nasal congestion [Recovering/Resolving]
  - Headache [Recovered/Resolved]
  - Conjunctivitis bacterial [Recovered/Resolved]
  - Ocular hyperaemia [Unknown]
  - Eye pruritus [Unknown]
  - Conjunctivitis viral [Recovered/Resolved]
  - Pruritus [Not Recovered/Not Resolved]
  - Rash papular [Not Recovered/Not Resolved]
  - Erythema [Recovering/Resolving]
  - Peripheral swelling [Recovering/Resolving]
  - Skin exfoliation [Not Recovered/Not Resolved]
  - Panic reaction [Unknown]
  - Anxiety [Unknown]
  - Infection [Unknown]
  - Tension [Unknown]
  - Cough [Recovered/Resolved]
  - Oropharyngeal pain [Recovered/Resolved]
  - Dysphonia [Recovered/Resolved]
  - Abdominal distension [Unknown]
  - Pigmentation disorder [Unknown]
  - Body height decreased [Unknown]
  - Swelling [Not Recovered/Not Resolved]
  - Malaise [Recovered/Resolved]
  - Bone pain [Not Recovered/Not Resolved]
  - Weight fluctuation [Not Recovered/Not Resolved]
  - Influenza [Recovered/Resolved]
  - Viral infection [Unknown]
  - Throat irritation [Recovering/Resolving]
  - Influenza [Not Recovered/Not Resolved]
  - Dysmenorrhoea [Unknown]
  - Sluggishness [Unknown]
  - Fall [Unknown]
  - Cough [Not Recovered/Not Resolved]
  - Fatigue [Not Recovered/Not Resolved]
  - Gait disturbance [Recovering/Resolving]
  - Pelvic pain [Recovering/Resolving]
  - Spinal disorder [Not Recovered/Not Resolved]
  - Decreased immune responsiveness [Unknown]
  - Back pain [Recovering/Resolving]
  - Spinal pain [Not Recovered/Not Resolved]
  - Muscle spasms [Recovering/Resolving]
  - Wound [Recovering/Resolving]
  - Seborrhoea [Not Recovered/Not Resolved]
  - Stress [Not Recovered/Not Resolved]
  - Alopecia [Not Recovered/Not Resolved]
  - Dysstasia [Not Recovered/Not Resolved]
  - Limb injury [Not Recovered/Not Resolved]
  - Discomfort [Not Recovered/Not Resolved]
  - Sleep disorder [Not Recovered/Not Resolved]
  - Macule [Not Recovered/Not Resolved]
  - Skin lesion [Not Recovered/Not Resolved]
  - Pain of skin [Not Recovered/Not Resolved]
  - Condition aggravated [Not Recovered/Not Resolved]
  - Feeling of despair [Not Recovered/Not Resolved]
  - Akathisia [Not Recovered/Not Resolved]
  - Malaise [Unknown]
  - Pyrexia [Unknown]
  - Inflammation [Not Recovered/Not Resolved]
  - Arthralgia [Recovering/Resolving]
  - Pain in extremity [Not Recovered/Not Resolved]
  - Dry skin [Not Recovered/Not Resolved]
  - Psoriasis [Not Recovered/Not Resolved]
  - Pustule [Not Recovered/Not Resolved]
  - Skin injury [Not Recovered/Not Resolved]
  - Musculoskeletal stiffness [Not Recovered/Not Resolved]
  - Rash pustular [Recovered/Resolved]
  - Movement disorder [Unknown]
  - Product dose omission issue [Unknown]
  - Product dispensing issue [Unknown]
  - Product prescribing error [Not Recovered/Not Resolved]
  - Therapeutic product effect incomplete [Not Recovered/Not Resolved]
  - Drug ineffective [Not Recovered/Not Resolved]

NARRATIVE: CASE EVENT DATE: 20180201
